FAERS Safety Report 6726560-3 (Version None)
Quarter: 2010Q2

REPORT INFORMATION
  Report Type: 
  Country: None (occurrence: None)
  Receive Date: 20100514
  Receipt Date: 20100325
  Transmission Date: 20101027
  Serious: Yes (Other)
  Sender: FDA-Public Use
  Company Number: US-BRISTOL-MYERS SQUIBB COMPANY-15013402

PATIENT
  Age: 53 Year
  Sex: Female

DRUGS (1)
  1. IXEMPRA KIT [Suspect]
     Indication: BREAST CANCER
     Dosage: 1ST DOSE:04FEB2010;2ND DOSE:25FEB2010.
     Route: 042
     Dates: start: 20100204, end: 20100225

REACTIONS (2)
  - CHEST PAIN [None]
  - DYSPNOEA [None]
